FAERS Safety Report 22129476 (Version 3)
Quarter: 2023Q4

REPORT INFORMATION
  Report Type: Spontaneous
  Country: US (occurrence: US)
  Receive Date: 20230323
  Receipt Date: 20231114
  Transmission Date: 20240109
  Serious: Yes (Other)
  Sender: FDA-Public Use
  Company Number: US-AMRYT PHARMACEUTICALS DAC-AEGR006240

PATIENT
  Sex: Male
  Weight: 95.238 kg

DRUGS (24)
  1. JUXTAPID [Suspect]
     Active Substance: LOMITAPIDE MESYLATE
     Indication: Type IIa hyperlipidaemia
     Dosage: 10 MILLIGRAM, AT BEDTIME
     Route: 048
  2. JUXTAPID [Suspect]
     Active Substance: LOMITAPIDE MESYLATE
     Indication: Hyperlipidaemia
  3. TRELEGY ELLIPTA [Concomitant]
     Active Substance: FLUTICASONE FUROATE\UMECLIDINIUM BROMIDE\VILANTEROL TRIFENATATE
     Indication: Product used for unknown indication
     Dosage: 200-62.5 BLST W/DEV
  4. TRELEGY ELLIPTA [Concomitant]
     Active Substance: FLUTICASONE FUROATE\UMECLIDINIUM BROMIDE\VILANTEROL TRIFENATATE
     Dosage: 100-62.5 BLST W/DEV
  5. MIRAPEX [Concomitant]
     Active Substance: PRAMIPEXOLE DIHYDROCHLORIDE
     Indication: Product used for unknown indication
     Dosage: 0.5 MILLIGRAM, TABLET
  6. FENOFIBRATE [Concomitant]
     Active Substance: FENOFIBRATE
     Indication: Product used for unknown indication
     Dosage: 160 MILLIGRAM TABLET
  7. XARELTO [Concomitant]
     Active Substance: RIVAROXABAN
     Indication: Product used for unknown indication
     Dosage: 20 MILLIGRAM TABLET
  8. VITAMIN D3 [Concomitant]
     Active Substance: CHOLECALCIFEROL
     Indication: Product used for unknown indication
     Dosage: 100000 GRAM POWDER
  9. VITAMIN D3 [Concomitant]
     Active Substance: CHOLECALCIFEROL
     Dosage: 25 MICROGRAM
  10. FISH OIL [Concomitant]
     Active Substance: FISH OIL
     Indication: Product used for unknown indication
     Dosage: 100-160 MG CAPSULE
  11. CARVEDILOL [Concomitant]
     Active Substance: CARVEDILOL
     Indication: Product used for unknown indication
     Dosage: 25 MILLIGRAM, TABLET
  12. MAGNESIUM [Concomitant]
     Active Substance: MAGNESIUM
     Indication: Product used for unknown indication
     Dosage: 400 MILLIGRAM, CAPSULE
  13. ASPIRIN [Concomitant]
     Active Substance: ASPIRIN
     Indication: Product used for unknown indication
     Dosage: 81 MILLIGRAM, TAB CEW
  14. NORVASC [Concomitant]
     Active Substance: AMLODIPINE BESYLATE
     Indication: Product used for unknown indication
     Dosage: 5 MILLIGRAM, TABLET
  15. VITAMIN E [Concomitant]
     Active Substance: .ALPHA.-TOCOPHEROL
     Indication: Product used for unknown indication
     Dosage: 268 MILLIGRAM CAPSULE
  16. TELMISARTAN [Concomitant]
     Active Substance: TELMISARTAN
     Indication: Product used for unknown indication
     Dosage: 80 MILLIGRAM TABLET
  17. MAGNESIUM OXIDE [Concomitant]
     Active Substance: MAGNESIUM OXIDE
     Indication: Product used for unknown indication
     Dosage: 400 MILLIGRAM TABLET
  18. FORTESTA [Concomitant]
     Active Substance: TESTOSTERONE
     Indication: Product used for unknown indication
     Dosage: 10 MILLIGRAM, (2%) GEL MD PMP
  19. TAMSULOSIN HYDROCHLORIDE [Concomitant]
     Active Substance: TAMSULOSIN HYDROCHLORIDE
     Indication: Product used for unknown indication
     Dosage: 0.4 MILLIGRAM CAPSULE
  20. TRIAMCINOLONE ACETONIDE [Concomitant]
     Active Substance: TRIAMCINOLONE ACETONIDE
     Indication: Product used for unknown indication
     Dosage: 0.1 PERCENT CREAM(GM)
  21. KETOCONAZOLE [Concomitant]
     Active Substance: KETOCONAZOLE
     Indication: Product used for unknown indication
     Dosage: 2 PERCENT, CREAM(GM)
  22. MICARDIS [Concomitant]
     Active Substance: TELMISARTAN
     Indication: Product used for unknown indication
     Dosage: 80 MILLIGRAM TABLET
  23. TESTOSTERONE [Concomitant]
     Active Substance: TESTOSTERONE
     Indication: Product used for unknown indication
     Dosage: 10 MG (2%) GEL MD PMP
  24. DIAZEPAM [Concomitant]
     Active Substance: DIAZEPAM
     Indication: Product used for unknown indication
     Dosage: 5 MILLIGRAM TABLET

REACTIONS (3)
  - Aortic aneurysm [Unknown]
  - Treatment noncompliance [Unknown]
  - Product dose omission issue [Unknown]
